FAERS Safety Report 5238361-6 (Version None)
Quarter: 2007Q1

REPORT INFORMATION
  Report Type: 
  Country: None (occurrence: None)
  Receive Date: 20070212
  Receipt Date: 20070212
  Transmission Date: 20070707
  Serious: Yes (Other)
  Sender: FDA-Public Use
  Company Number: None

PATIENT
  Age: 45 Year
  Sex: Male
  Weight: 86.1834 kg

DRUGS (1)
  1. EQUATE - PACKAGED BY PERRIGO HEARTBURN RELIEF - CIMETIDINE 200 MG [Suspect]
     Indication: DYSPEPSIA
     Dosage: 200 MG 2 TIMES PER DAY PO
     Route: 048
     Dates: start: 20061001, end: 20070208

REACTIONS (1)
  - DRUG EFFECT DECREASED [None]
